FAERS Safety Report 8816365 (Version 1)
Quarter: 2012Q4

REPORT INFORMATION
  Report Type: Spontaneous
  Country: US (occurrence: None)
  Receive Date: 20120927
  Receipt Date: 20120927
  Transmission Date: 20130627
  Serious: No
  Sender: FDA-Public Use
  Company Number: None

PATIENT
  Age: 67 Year
  Sex: Female
  Weight: 56.7 kg

DRUGS (2)
  1. LORAZEPAM [Suspect]
     Indication: ANXIETY
     Dosage: 1/2 MG when needed po
     Route: 048
     Dates: start: 20110817, end: 20120922
  2. LORAZEPAM [Suspect]
     Indication: SLEEPLESSNESS
     Dosage: 1/2 MG when needed po
     Route: 048
     Dates: start: 20110817, end: 20120922

REACTIONS (5)
  - Nightmare [None]
  - Somnolence [None]
  - Confusional state [None]
  - Product quality issue [None]
  - Product substitution issue [None]
